FAERS Safety Report 6191308-0 (Version None)
Quarter: 2009Q2

REPORT INFORMATION
  Report Type: 
  Country: None (occurrence: None)
  Receive Date: 20090515
  Receipt Date: 20090511
  Transmission Date: 20091009
  Serious: Yes (Hospitalization)
  Sender: FDA-Public Use
  Company Number: ES-ROCHE-632708

PATIENT
  Age: 85 Year
  Sex: Male

DRUGS (5)
  1. ROCEFALIN [Suspect]
     Indication: PNEUMONIA
     Route: 042
     Dates: start: 20090203, end: 20090207
  2. TAVANIC [Suspect]
     Indication: PNEUMONIA
     Route: 042
     Dates: start: 20090203, end: 20090207
  3. ATROVENT [Concomitant]
     Dates: start: 20090203
  4. FLUMIL [Concomitant]
     Dates: start: 20090203
  5. PULMICORT [Concomitant]
     Dates: start: 20090203

REACTIONS (2)
  - GASTROINTESTINAL HAEMORRHAGE [None]
  - THROMBOCYTOPENIA [None]
